FAERS Safety Report 12201815 (Version 2)
Quarter: 2016Q2

REPORT INFORMATION
  Report Type: Spontaneous
  Country: CH (occurrence: CH)
  Receive Date: 20160322
  Receipt Date: 20160404
  Transmission Date: 20160815
  Serious: Yes (Other)
  Sender: FDA-Public Use
  Company Number: CH-CELGENE-CHE-2016015882

PATIENT
  Age: 53 Year
  Sex: Male

DRUGS (3)
  1. OTEZLA [Suspect]
     Active Substance: APREMILAST
     Indication: PSORIATIC ARTHROPATHY
     Route: 048
     Dates: start: 20151015, end: 20151019
  2. NOVALGIN [Concomitant]
     Active Substance: METAMIZOLE SODIUM
     Indication: PAIN
     Route: 065
     Dates: start: 201401
  3. VIMOVO [Concomitant]
     Active Substance: ESOMEPRAZOLE MAGNESIUM\NAPROXEN
     Indication: PAIN
     Route: 065
     Dates: start: 201506

REACTIONS (5)
  - Dyspnoea [Recovered/Resolved]
  - Abdominal pain upper [Recovered/Resolved]
  - Nausea [Unknown]
  - Hyperhidrosis [Recovered/Resolved]
  - Pruritus [Recovered/Resolved]

NARRATIVE: CASE EVENT DATE: 20151018
